FAERS Safety Report 6231875-1 (Version None)
Quarter: 2009Q2

REPORT INFORMATION
  Report Type: 
  Country: None (occurrence: None)
  Receive Date: 20090612
  Receipt Date: 20090608
  Transmission Date: 20091009
  Serious: Yes (Death)
  Sender: FDA-Public Use
  Company Number: 2009JP003528

PATIENT
  Age: 10 Year
  Sex: Male
  Weight: 25 kg

DRUGS (3)
  1. PROGRAF [Suspect]
     Indication: CORD BLOOD TRANSPLANT THERAPY
  2. L-PAM (MELPHALAN) FORMULATION UNKNOWN [Concomitant]
  3. FLUDARABINE (FLUDARABINE) FORMULATION UNKNOWN [Concomitant]

REACTIONS (1)
  - BACTERIAL INFECTION [None]
